FAERS Safety Report 6030252-6 (Version None)
Quarter: 2009Q1

REPORT INFORMATION
  Report Type: 
  Country: None (occurrence: None)
  Receive Date: 20090107
  Receipt Date: 20081231
  Transmission Date: 20090719
  Serious: Yes (Other)
  Sender: FDA-Public Use
  Company Number: US-ASTRAZENECA-2006UW07968

PATIENT
  Age: 43 Year
  Sex: Female
  Weight: 123.8 kg

DRUGS (12)
  1. SEROQUEL [Suspect]
     Indication: DEPRESSION
     Dosage: 300 MG TO 600 MG
     Route: 048
     Dates: start: 20010101, end: 20030601
  2. SEROQUEL [Suspect]
     Indication: ANXIETY
     Dosage: 300 MG TO 600 MG
     Route: 048
     Dates: start: 20010101, end: 20030601
  3. SEROQUEL [Suspect]
     Indication: SLEEP DISORDER
     Dosage: 300 MG TO 600 MG
     Route: 048
     Dates: start: 20010101, end: 20030601
  4. SEROQUEL [Suspect]
     Dosage: 25MG - 75MG
     Route: 048
     Dates: start: 20010901, end: 20011201
  5. SEROQUEL [Suspect]
     Dosage: 25MG - 75MG
     Route: 048
     Dates: start: 20010901, end: 20011201
  6. SEROQUEL [Suspect]
     Dosage: 25MG - 75MG
     Route: 048
     Dates: start: 20010901, end: 20011201
  7. SEROQUEL [Suspect]
     Dosage: 600MG - 625MG
     Route: 048
     Dates: start: 20030801, end: 20060801
  8. SEROQUEL [Suspect]
     Dosage: 600MG - 625MG
     Route: 048
     Dates: start: 20030801, end: 20060801
  9. SEROQUEL [Suspect]
     Dosage: 600MG - 625MG
     Route: 048
     Dates: start: 20030801, end: 20060801
  10. ZOLOFT [Concomitant]
     Dates: start: 20000101
  11. RISPERDAL [Concomitant]
     Dates: start: 20010801, end: 20010901
  12. RISPERDAL [Concomitant]
     Dates: start: 20020201

REACTIONS (16)
  - ABDOMINAL PAIN [None]
  - ACCIDENTAL OVERDOSE [None]
  - ARTHRITIS [None]
  - ASTHMA [None]
  - CARDIAC DISORDER [None]
  - CELLULITIS [None]
  - HYPERGLYCAEMIA [None]
  - HYPERTENSION [None]
  - LUNG DISORDER [None]
  - MUSCULOSKELETAL PAIN [None]
  - NECK PAIN [None]
  - OBESITY [None]
  - PAIN IN EXTREMITY [None]
  - SINUS HEADACHE [None]
  - TYPE 2 DIABETES MELLITUS [None]
  - WEIGHT INCREASED [None]
